FAERS Safety Report 10455045 (Version 2)
Quarter: 2014Q4

REPORT INFORMATION
  Report Type: Spontaneous
  Country: US (occurrence: US)
  Receive Date: 20140915
  Receipt Date: 20141124
  Transmission Date: 20150528
  Serious: Yes (Other)
  Sender: FDA-Public Use
  Company Number: US-BRISTOL-MYERS SQUIBB COMPANY-21390612

PATIENT
  Age: 63 Year
  Sex: Male
  Weight: 105.48 kg

DRUGS (20)
  1. LISINOPRIL. [Concomitant]
     Active Substance: LISINOPRIL
  2. IMDUR [Concomitant]
     Active Substance: ISOSORBIDE MONONITRATE
  3. BYETTA [Suspect]
     Active Substance: EXENATIDE
     Dosage: 5MCG BID?12MAR2013
     Dates: start: 20110302, end: 20110803
  4. VICTOZA [Suspect]
     Active Substance: LIRAGLUTIDE
     Dates: start: 20120103, end: 20120215
  5. LEVEMIR [Concomitant]
     Active Substance: INSULIN DETEMIR
  6. ALDOMET [Concomitant]
     Active Substance: METHYLDOPA
  7. HYDRODIURIL [Concomitant]
     Active Substance: HYDROCHLOROTHIAZIDE
  8. GLUCOVANCE [Concomitant]
     Active Substance: GLYBURIDE\METFORMIN HYDROCHLORIDE
  9. TOPROL XL [Concomitant]
     Active Substance: METOPROLOL SUCCINATE
  10. PHENERGAN [Concomitant]
     Active Substance: PROMETHAZINE HYDROCHLORIDE
     Indication: NAUSEA
  11. MOTRIN [Concomitant]
     Active Substance: IBUPROFEN
  12. AMLODIPINE [Concomitant]
     Active Substance: AMLODIPINE BESYLATE
  13. MS CONTIN [Concomitant]
     Active Substance: MORPHINE SULFATE
  14. AMARYL [Concomitant]
     Active Substance: GLIMEPIRIDE
  15. ASPIRIN. [Concomitant]
     Active Substance: ASPIRIN
  16. PHENERGAN [Concomitant]
     Active Substance: PROMETHAZINE HYDROCHLORIDE
     Indication: VOMITING
  17. JANUVIA [Suspect]
     Active Substance: SITAGLIPTIN PHOSPHATE
     Dates: start: 20101201, end: 20110302
  18. LOPRESSOR [Concomitant]
     Active Substance: METOPROLOL TARTRATE
  19. MORPHINE [Concomitant]
     Active Substance: MORPHINE
  20. ZETIA [Concomitant]
     Active Substance: EZETIMIBE

REACTIONS (1)
  - Pancreatic carcinoma metastatic [Unknown]

NARRATIVE: CASE EVENT DATE: 20140116
